FAERS Safety Report 4941012-9 (Version None)
Quarter: 2006Q1

REPORT INFORMATION
  Report Type: 
  Country: None (occurrence: None)
  Receive Date: 20060313
  Receipt Date: 20060206
  Transmission Date: 20060701
  Serious: Yes (Other)
  Sender: FDA-Public Use
  Company Number: PHBS2006JP02189

PATIENT
  Age: 64 Year
  Sex: Female
  Weight: 45 kg

DRUGS (3)
  1. AREDIA [Suspect]
     Indication: METASTASES TO BONE
     Dosage: 90 MG, QMO
     Dates: start: 20020328, end: 20050512
  2. TRASTUZUMAB [Concomitant]
     Dosage: 2 MG/KG
     Dates: start: 20010823, end: 20040408
  3. PACLITAXEL [Concomitant]
     Dosage: 80 MG/M2, QW
     Route: 042
     Dates: start: 20011122, end: 20041104

REACTIONS (9)
  - BONE DISORDER [None]
  - DENTAL CARIES [None]
  - HYPERBARIC OXYGEN THERAPY [None]
  - MALIGNANT NEOPLASM PROGRESSION [None]
  - METASTASES TO CENTRAL NERVOUS SYSTEM [None]
  - OSTEOMYELITIS [None]
  - OSTEONECROSIS [None]
  - PAIN IN JAW [None]
  - TOOTHACHE [None]
